FAERS Safety Report 5705716-2 (Version None)
Quarter: 2008Q2

REPORT INFORMATION
  Report Type: 
  Country: None (occurrence: None)
  Receive Date: 20080415
  Receipt Date: 20080404
  Transmission Date: 20081010
  Serious: Yes (Other)
  Sender: FDA-Public Use
  Company Number: A0722661A

PATIENT
  Age: 1 Year
  Sex: Male

DRUGS (1)
  1. LAMICTAL [Suspect]
     Indication: DRUG USE FOR UNKNOWN INDICATION
     Dosage: 2MG FIVE TIMES PER DAY
     Route: 048
     Dates: start: 20080330, end: 20080331

REACTIONS (8)
  - AGGRESSION [None]
  - CRYING [None]
  - DRUG DISPENSING ERROR [None]
  - FEAR [None]
  - IRRITABILITY [None]
  - OVERDOSE [None]
  - RASH [None]
  - TREMOR [None]
